FAERS Safety Report 8286449-8 (Version None)
Quarter: 2012Q2

REPORT INFORMATION
  Report Type: 
  Country: None (occurrence: None)
  Receive Date: 20120411
  Receipt Date: 20120329
  Transmission Date: 20120825
  Serious: Yes (Other)
  Sender: FDA-Public Use
  Company Number: 2012S1000342

PATIENT
  Age: 82 Year
  Sex: Female
  Weight: 38 kg

DRUGS (3)
  1. GALANTAMINE HYDROBROMIDE [Suspect]
     Indication: DEMENTIA ALZHEIMER'S TYPE
     Dosage: 4 MG;BID;PO 8 MG;BID;PO
     Route: 048
     Dates: start: 20120216, end: 20120315
  2. GALANTAMINE HYDROBROMIDE [Suspect]
     Indication: DEMENTIA ALZHEIMER'S TYPE
     Dosage: 4 MG;BID;PO 8 MG;BID;PO
     Route: 048
     Dates: start: 20120119, end: 20120216
  3. LIVALO [Suspect]
     Indication: HYPERCHOLESTEROLAEMIA
     Dosage: 2 MG;1X;PO
     Route: 048
     Dates: start: 20120119, end: 20120314

REACTIONS (2)
  - THROMBOCYTOPENIA [None]
  - VIRAL INFECTION [None]
